FAERS Safety Report 7537213-6 (Version None)
Quarter: 2011Q2

REPORT INFORMATION
  Report Type: 
  Country: None (occurrence: None)
  Receive Date: 20110609
  Receipt Date: 20110603
  Transmission Date: 20111010
  Serious: Yes (Other)
  Sender: FDA-Public Use
  Company Number: JP-PFIZER INC-2011091146

PATIENT
  Age: 64 Year
  Sex: Female
  Weight: 63 kg

DRUGS (5)
  1. EC DOPARL [Suspect]
     Indication: PARKINSON'S DISEASE
     Dosage: 100 MG, 3X/DAY
     Route: 048
     Dates: start: 20031224
  2. PRAMIPEXOLE DIHYDROCHLORIDE [Suspect]
     Indication: PARKINSON'S DISEASE
     Dosage: 0.5 MG, 3X/DAY
     Route: 048
     Dates: start: 20070713
  3. ARTANE [Suspect]
     Indication: PARKINSON'S DISEASE
     Dosage: 2 MG, 2X/DAY
     Route: 048
     Dates: start: 20031224
  4. CABERGOLINE [Concomitant]
     Indication: PARKINSON'S DISEASE
     Dosage: 1 MG, 2X/DAY
     Route: 048
     Dates: start: 20050218, end: 20070701
  5. CLONAZEPAM [Concomitant]
     Indication: PARKINSON'S DISEASE
     Dosage: 0.5 MG, 2X/DAY
     Route: 048
     Dates: start: 20031224

REACTIONS (2)
  - PARKINSON'S DISEASE [None]
  - EYELID PTOSIS [None]
